FAERS Safety Report 12593764 (Version 1)
Quarter: 2016Q3

REPORT INFORMATION
  Report Type: Spontaneous
  Country: US (occurrence: US)
  Receive Date: 20160726
  Receipt Date: 20160726
  Transmission Date: 20161109
  Serious: No
  Sender: FDA-Public Use
  Company Number: US-ABBVIE-16P-163-1654381-00

PATIENT
  Sex: Female
  Weight: 43.13 kg

DRUGS (5)
  1. TIROSINT [Suspect]
     Active Substance: LEVOTHYROXINE SODIUM
     Dosage: 25MCG TWO CONSECUTIVE DAYS, 3RD DAY 50MCG THEN REPEATS
     Route: 048
     Dates: start: 201604
  2. TIROSINT [Suspect]
     Active Substance: LEVOTHYROXINE SODIUM
     Route: 048
     Dates: start: 201604, end: 201604
  3. TIROSINT [Suspect]
     Active Substance: LEVOTHYROXINE SODIUM
     Indication: HYPOTHYROIDISM
     Route: 048
     Dates: start: 201604, end: 201604
  4. TIROSINT [Suspect]
     Active Substance: LEVOTHYROXINE SODIUM
     Dosage: 25MCG TWO CONSECUTIVE DAYS, 3RD DAY 50MCG THEN REPEATS
     Route: 048
     Dates: start: 201604
  5. SYNTHROID [Suspect]
     Active Substance: LEVOTHYROXINE SODIUM
     Indication: PRODUCT USED FOR UNKNOWN INDICATION
     Route: 065

REACTIONS (12)
  - Hypersensitivity [Unknown]
  - Hypothyroidism [Unknown]
  - Insomnia [Unknown]
  - Burning sensation [Unknown]
  - Muscle spasms [Unknown]
  - Irritability [Unknown]
  - Hyperthyroidism [Unknown]
  - Drug level below therapeutic [Unknown]
  - Pain [Unknown]
  - Drug level above therapeutic [Unknown]
  - Dizziness [Unknown]
  - Bronchitis [Unknown]
